FAERS Safety Report 4556859-0 (Version None)
Quarter: 2005Q1

REPORT INFORMATION
  Report Type: 
  Country: None (occurrence: None)
  Receive Date: 20050118
  Receipt Date: 20050104
  Transmission Date: 20050727
  Serious: Yes (Hospitalization)
  Sender: FDA-Public Use
  Company Number: HQWYE399005JAN05

PATIENT
  Age: 54 Year
  Sex: Female
  Weight: 57.2 kg

DRUGS (4)
  1. PREMPRO [Suspect]
     Indication: HOT FLUSH
     Dosage: 0.625 MG/2.5 MG, ORAL
     Route: 048
     Dates: start: 19960101
  2. BACTRIM [Concomitant]
  3. RESTORIL [Concomitant]
  4. XANAX [Concomitant]

REACTIONS (16)
  - ABDOMINAL PAIN UPPER [None]
  - ALOPECIA [None]
  - BLADDER DISORDER [None]
  - BREAST PAIN [None]
  - CONDITION AGGRAVATED [None]
  - CYSTITIS [None]
  - DRUG INEFFECTIVE [None]
  - DYSPNOEA [None]
  - HEPATIC ENZYME INCREASED [None]
  - NAUSEA [None]
  - NERVOUSNESS [None]
  - PANCREATIC DISORDER [None]
  - PANCREATIC ENLARGEMENT [None]
  - ULCER [None]
  - VAGINAL MYCOSIS [None]
  - VULVOVAGINAL DRYNESS [None]
